FAERS Safety Report 17103870 (Version 1)
Quarter: 2019Q4

REPORT INFORMATION
  Report Type: Other
  Country: GB (occurrence: GB)
  Receive Date: 20191203
  Receipt Date: 20191203
  Transmission Date: 20200122
  Serious: Yes (Hospitalization)
  Sender: FDA-Public Use
  Company Number: GB-EMCURE PHARMACEUTICALS LTD-2015-EPL-0083

PATIENT
  Age: 15 Year
  Sex: Female

DRUGS (5)
  1. SOMATROPIN. [Concomitant]
     Active Substance: SOMATROPIN
  2. HYDROCORTISONE ACETATE. [Concomitant]
     Active Substance: HYDROCORTISONE ACETATE
  3. METFORMIN [Suspect]
     Active Substance: METFORMIN HYDROCHLORIDE
     Indication: GLUCOSE TOLERANCE IMPAIRED
     Dosage: WAS INCREASED TO 1G TWICE DAILY 3-4 DAYS PRIOR TO THE EVENT
     Route: 048
     Dates: start: 20150401
  4. THYROXINE [Concomitant]
     Active Substance: LEVOTHYROXINE
  5. METFORMIN [Suspect]
     Active Substance: METFORMIN HYDROCHLORIDE
     Indication: BODY MASS INDEX INCREASED
     Dosage: 1 G PER 0.5 DAY
     Route: 048
     Dates: start: 201504

REACTIONS (1)
  - Hypothermia [Recovered/Resolved]

NARRATIVE: CASE EVENT DATE: 20150427
